FAERS Safety Report 7569226-2 (Version None)
Quarter: 2011Q2

REPORT INFORMATION
  Report Type: 
  Country: None (occurrence: None)
  Receive Date: 20110623
  Receipt Date: 20110615
  Transmission Date: 20111010
  Serious: Yes (Hospitalization)
  Sender: FDA-Public Use
  Company Number: PHHO2010NL01901

PATIENT
  Sex: Male
  Weight: 92 kg

DRUGS (3)
  1. CERTICAN [Suspect]
     Indication: RENAL TRANSPLANT
     Dosage: 1.5 MG, BID
     Route: 048
     Dates: start: 20091217, end: 20100725
  2. SIMULECT [Concomitant]
  3. AEB071 [Suspect]
     Indication: RENAL TRANSPLANT
     Dosage: 200 MG, BID
     Route: 048
     Dates: start: 20091217, end: 20100725

REACTIONS (4)
  - TACHYCARDIA [None]
  - PULMONARY EMBOLISM [None]
  - DYSPNOEA [None]
  - HYPOXIA [None]
